FAERS Safety Report 12092712 (Version 1)
Quarter: 2016Q1

REPORT INFORMATION
  Report Type: Spontaneous
  Country: US (occurrence: None)
  Receive Date: 20160218
  Receipt Date: 20160218
  Transmission Date: 20160526
  Serious: Yes (Death)
  Sender: FDA-Public Use
  Company Number: None

PATIENT
  Age: 51 Year
  Sex: Female

DRUGS (1)
  1. VALGANCICLOVIR 450MG TABS QUALITEST PHA RMACEUTICALS [Suspect]
     Active Substance: VALGANCICLOVIR
     Dates: start: 20150824, end: 201602

REACTIONS (1)
  - Product substitution issue [None]
